FAERS Safety Report 4432790-6 (Version None)
Quarter: 2004Q3

REPORT INFORMATION
  Report Type: 
  Country: None (occurrence: None)
  Receive Date: 20040721
  Receipt Date: 20040512
  Transmission Date: 20050211
  Serious: Yes (Other)
  Sender: FDA-Public Use
  Company Number: 2004020356

PATIENT
  Age: 45 Year
  Sex: Female

DRUGS (4)
  1. RELPAX [Suspect]
     Indication: MIGRAINE
     Dosage: 40 MG, ONCE, ORAL
     Route: 048
     Dates: start: 20040306, end: 20040306
  2. BUPROPION HYDROCHLORIDE [Concomitant]
  3. RABEPRAZOLE SODIUM [Concomitant]
  4. MARVELON (DESOGESREL, ETHINYLESTRADIOL) [Concomitant]

REACTIONS (3)
  - ASTHENIA [None]
  - DIZZINESS POSTURAL [None]
  - HYPERSENSITIVITY [None]
